FAERS Safety Report 24242364 (Version 1)
Quarter: 2024Q3

REPORT INFORMATION
  Report Type: Spontaneous
  Country: US (occurrence: US)
  Receive Date: 20240823
  Receipt Date: 20240823
  Transmission Date: 20241016
  Serious: No
  Sender: APOTEX
  Company Number: US-APOTEX-2023AP016513

PATIENT
  Age: 54 Year
  Sex: Male

DRUGS (14)
  1. TEMOZOLOMIDE [Suspect]
     Active Substance: TEMOZOLOMIDE
     Indication: Isocitrate dehydrogenase gene mutation
     Dosage: 50 MILLIGRAM/SQ. METER, QD (THERAPY DURATION: 6.8 MONTHS)(6 WEEK CYCLE )
     Route: 065
  2. TEMOZOLOMIDE [Suspect]
     Active Substance: TEMOZOLOMIDE
     Indication: Oligodendroglioma
     Dosage: 50 MILLIGRAM/SQ. METER, QD (THERAPY DURATION: 6.8 MONTHS) (4 WEEK CYCLE )
     Route: 065
  3. OLAPARIB [Suspect]
     Active Substance: OLAPARIB
     Indication: Isocitrate dehydrogenase gene mutation
     Dosage: 150 MILLIGRAM, T.I.W (THERAPY DURATION: 6.8 MONTHS) (6 WEEKS CYCLE)
     Route: 065
  4. OLAPARIB [Suspect]
     Active Substance: OLAPARIB
     Indication: Oligodendroglioma
     Dosage: 150 MILLIGRAM, T.I.W (THERAPY DURATION: 6.8 MONTHS) (4 WEEKS CYCLE)
     Route: 065
  5. PROCARBAZINE [Suspect]
     Active Substance: PROCARBAZINE
     Indication: Isocitrate dehydrogenase gene mutation
     Dosage: UNK
     Route: 065
  6. PROCARBAZINE [Suspect]
     Active Substance: PROCARBAZINE
     Indication: Oligodendroglioma
  7. LOMUSTINE [Suspect]
     Active Substance: LOMUSTINE
     Indication: Isocitrate dehydrogenase gene mutation
     Dosage: UNK
     Route: 065
  8. LOMUSTINE [Suspect]
     Active Substance: LOMUSTINE
     Indication: Oligodendroglioma
  9. PEMBROLIZUMAB [Suspect]
     Active Substance: PEMBROLIZUMAB
     Indication: Isocitrate dehydrogenase gene mutation
     Dosage: UNK
     Route: 065
  10. PEMBROLIZUMAB [Suspect]
     Active Substance: PEMBROLIZUMAB
     Indication: Oligodendroglioma
  11. BEVACIZUMAB [Suspect]
     Active Substance: BEVACIZUMAB
     Indication: Isocitrate dehydrogenase gene mutation
     Dosage: UNK
     Route: 065
  12. BEVACIZUMAB [Suspect]
     Active Substance: BEVACIZUMAB
     Indication: Oligodendroglioma
  13. ABEMACICLIB [Suspect]
     Active Substance: ABEMACICLIB
     Indication: Isocitrate dehydrogenase gene mutation
     Dosage: UNK
     Route: 065
  14. ABEMACICLIB [Suspect]
     Active Substance: ABEMACICLIB
     Indication: Oligodendroglioma

REACTIONS (4)
  - Toxicity to various agents [Unknown]
  - Constipation [Unknown]
  - Fatigue [Unknown]
  - Nausea [Unknown]
